FAERS Safety Report 5749148-X (Version None)
Quarter: 2008Q2

REPORT INFORMATION
  Report Type: 
  Country: None (occurrence: None)
  Receive Date: 20080522
  Receipt Date: 20080508
  Transmission Date: 20081010
  Serious: Yes (Hospitalization, Other)
  Sender: FDA-Public Use
  Company Number: GXKR2008IT04247

PATIENT
  Age: 57 Year
  Sex: Male

DRUGS (3)
  1. METHYLPREDNISOLONE [Suspect]
     Dosage: 1 G, QD,
  2. INTERFERON BETA-1A /00596808/(INTERFERON BETA-1A) [Suspect]
     Dosage: 30 UG, QW,
     Dates: start: 20051001
  3. INTERFERON BETA-1B(INTERFERON BETA) [Suspect]
     Indication: MULTIPLE SCLEROSIS
     Dosage: 8 MILLION UNITS EVERY 2ND DAY,
     Dates: start: 20050501

REACTIONS (17)
  - AKINESIA [None]
  - ANAEMIA [None]
  - HYPERTENSION [None]
  - HYPERTENSIVE CRISIS [None]
  - LEFT VENTRICULAR DYSFUNCTION [None]
  - LEUKOCYTOSIS [None]
  - MULTIPLE SCLEROSIS RELAPSE [None]
  - PULMONARY OEDEMA [None]
  - RAYNAUD'S PHENOMENON [None]
  - RENAL FAILURE [None]
  - RETINAL EXUDATES [None]
  - RETINAL HAEMORRHAGE [None]
  - SCLERODERMA [None]
  - SCLERODERMA RENAL CRISIS [None]
  - SKIN NECROSIS [None]
  - SYSTEMIC SCLEROSIS [None]
  - ULCER [None]
